FAERS Safety Report 10665708 (Version 1)
Quarter: 2014Q4

REPORT INFORMATION
  Report Type: Spontaneous
  Country: CA (occurrence: CA)
  Receive Date: 20141219
  Receipt Date: 20141219
  Transmission Date: 20150529
  Serious: Yes (Other)
  Sender: FDA-Public Use
  Company Number: CA-APOTEX-2014AP006246

PATIENT
  Age: 19 Year
  Sex: Female

DRUGS (12)
  1. APO-OXYCODONE CR TABLETS, 5 MG [Suspect]
     Active Substance: OXYCODONE HYDROCHLORIDE
     Dosage: AS NEEDED (THIS WAS USED INFREQUENTLY)
     Route: 065
  2. APO-FENTANYL MATRIX [Suspect]
     Active Substance: FENTANYL
     Dosage: 12?G/HOUR EVERY 3 HOURS
     Route: 062
  3. APO-OXYCODONE CR TABLETS, 5 MG [Suspect]
     Active Substance: OXYCODONE HYDROCHLORIDE
     Indication: PROCEDURAL PAIN
     Dosage: LONG-ACTING, 80 MG, ONCE EVERY 8 HOURS
     Route: 065
  4. APO-FENTANYL MATRIX [Suspect]
     Active Substance: FENTANYL
     Indication: PROCEDURAL PAIN
     Dosage: 100MICROG/HOUR EVERY 3 DAYS
     Route: 062
  5. APO-OXYCODONE CR TABLETS, 5 MG [Suspect]
     Active Substance: OXYCODONE HYDROCHLORIDE
     Indication: COMPLEX REGIONAL PAIN SYNDROME
     Dosage: LONG-ACTING, 120 MG, 1 EVERY 12 HOURS
     Route: 065
  6. APO-PREGABALIN CAPSULES [Suspect]
     Active Substance: PREGABALIN
     Indication: PROCEDURAL PAIN
     Dosage: 50 UNK, UNK
     Route: 065
  7. APO-AMITRIPTYLINE HCL [Suspect]
     Active Substance: AMITRIPTYLINE
     Indication: COMPLEX REGIONAL PAIN SYNDROME
     Dosage: 150 MG, Q.H.S.
     Route: 065
  8. APO-FENTANYL MATRIX [Suspect]
     Active Substance: FENTANYL
     Indication: COMPLEX REGIONAL PAIN SYNDROME
     Dosage: 25MICROG/HOUR EVERY 3 DAYS
     Route: 062
  9. KETAMINE [Concomitant]
     Active Substance: KETAMINE
     Indication: PRODUCT USED FOR UNKNOWN INDICATION
     Dosage: UNK
     Route: 048
  10. APO-PREGABALIN CAPSULES [Suspect]
     Active Substance: PREGABALIN
     Indication: COMPLEX REGIONAL PAIN SYNDROME
     Dosage: 150 MG, BID
     Route: 065
  11. APO-AMITRIPTYLINE HCL [Suspect]
     Active Substance: AMITRIPTYLINE
     Indication: PROCEDURAL PAIN
     Dosage: 50 UNK, UNK
     Route: 065
  12. APO-FENTANYL MATRIX [Suspect]
     Active Substance: FENTANYL
     Dosage: 25?G/HOUR
     Route: 062

REACTIONS (2)
  - Weight increased [Unknown]
  - Drug withdrawal syndrome [Unknown]
